FAERS Safety Report 12219960 (Version 1)
Quarter: 2016Q1

REPORT INFORMATION
  Report Type: Not Available
  Country: FR (occurrence: FR)
  Receive Date: 20160330
  Receipt Date: 20160330
  Transmission Date: 20160526
  Serious: Yes (Other)
  Sender: FDA-Public Use
  Company Number: FR-BEH-2016060469

PATIENT
  Age: 35 Year
  Sex: Female

DRUGS (3)
  1. PRIVIGEN [Suspect]
     Active Substance: HUMAN IMMUNOGLOBULIN G
     Indication: POLYNEUROPATHY CHRONIC
     Dosage: 2X20G
     Route: 042
     Dates: start: 20150729
  2. PRIVIGEN [Suspect]
     Active Substance: HUMAN IMMUNOGLOBULIN G
     Dosage: 2X20G
     Route: 042
     Dates: start: 20150709
  3. PRIVIGEN [Suspect]
     Active Substance: HUMAN IMMUNOGLOBULIN G
     Route: 042
     Dates: start: 20150709, end: 20150903

REACTIONS (5)
  - Muscle spasms [Recovering/Resolving]
  - Muscle fatigue [Recovering/Resolving]
  - Drug ineffective [Recovering/Resolving]
  - Hyporeflexia [Recovering/Resolving]
  - Sensory loss [Recovering/Resolving]

NARRATIVE: CASE EVENT DATE: 201507
